FAERS Safety Report 7083267-3 (Version None)
Quarter: 2010Q4

REPORT INFORMATION
  Report Type: 
  Country: None (occurrence: None)
  Receive Date: 20101104
  Receipt Date: 20101022
  Transmission Date: 20110411
  Serious: Yes (Other)
  Sender: FDA-Public Use
  Company Number: US-BAYER-201022038NA

PATIENT
  Age: 35 Year
  Sex: Female

DRUGS (1)
  1. MIRENA [Suspect]
     Indication: CONTRACEPTION
     Dosage: CONTINUOUS ADMINISTRATION
     Route: 015
     Dates: start: 20100503, end: 20101001

REACTIONS (8)
  - ABDOMINAL PAIN [None]
  - CHILLS [None]
  - HAEMOGLOBIN DECREASED [None]
  - MEDICAL DEVICE COMPLICATION [None]
  - MEDICAL DEVICE DISCOMFORT [None]
  - MIGRAINE [None]
  - NIGHT SWEATS [None]
  - POST PROCEDURAL HAEMORRHAGE [None]
